FAERS Safety Report 23268508 (Version 4)
Quarter: 2024Q3

REPORT INFORMATION
  Report Type: Spontaneous
  Country: US (occurrence: US)
  Receive Date: 20231206
  Receipt Date: 20240814
  Transmission Date: 20241017
  Serious: No
  Sender: PFIZER
  Company Number: US-PFIZER INC-202300429312

PATIENT
  Age: 90 Year
  Sex: Female
  Weight: 49.9 kg

DRUGS (1)
  1. PREMARIN [Suspect]
     Active Substance: ESTROGENS, CONJUGATED
     Indication: Atrophic vulvovaginitis
     Dosage: INSERT 1G VAGINALLY 3 TIMES A WEEK
     Route: 067
     Dates: start: 2010

REACTIONS (2)
  - Therapeutic response unexpected [Unknown]
  - Off label use [Unknown]
